FAERS Safety Report 7122243-9 (Version None)
Quarter: 2010Q4

REPORT INFORMATION
  Report Type: 
  Country: None (occurrence: None)
  Receive Date: 20101122
  Receipt Date: 20101122
  Transmission Date: 20110411
  Serious: Yes (Other)
  Sender: FDA-Public Use
  Company Number: None

PATIENT
  Age: 52 Year
  Sex: Male
  Weight: 105.2345 kg

DRUGS (9)
  1. RALTEGRAVIR [Suspect]
     Indication: HIV INFECTION
     Dosage: 400 MG Q12H PO
     Route: 048
     Dates: start: 20090701, end: 20100927
  2. TRUVADA [Concomitant]
  3. FLUOXETINE HCL [Suspect]
  4. DEPAKOTE [Concomitant]
  5. DEXTROAMPHETAMINE [Concomitant]
  6. FINASTERIDE [Concomitant]
  7. OMEPRAZOLE [Concomitant]
  8. DILTIAZEM [Concomitant]
  9. RISPERADONE [Concomitant]

REACTIONS (7)
  - BLOOD CREATINE PHOSPHOKINASE INCREASED [None]
  - DIARRHOEA [None]
  - JOINT STIFFNESS [None]
  - MYALGIA [None]
  - OEDEMA PERIPHERAL [None]
  - PAIN IN EXTREMITY [None]
  - SWELLING [None]
